FAERS Safety Report 9862720 (Version 1)
Quarter: 2014Q1

REPORT INFORMATION
  Report Type: Spontaneous
  Country: US (occurrence: None)
  Receive Date: 20140131
  Receipt Date: 20140131
  Transmission Date: 20141002
  Serious: Yes (Other)
  Sender: FDA-Public Use
  Company Number: None

PATIENT
  Age: 56 Year
  Sex: Female
  Weight: 73.94 kg

DRUGS (2)
  1. DULOXETINE [Suspect]
     Indication: PAIN
     Route: 048
     Dates: start: 20140102, end: 20140120
  2. RANITIDINE [Concomitant]

REACTIONS (8)
  - Drug ineffective [None]
  - Product substitution issue [None]
  - Malaise [None]
  - Bone pain [None]
  - Disorientation [None]
  - Balance disorder [None]
  - Depression [None]
  - Arthritis [None]
